FAERS Safety Report 24396457 (Version 2)
Quarter: 2024Q4

REPORT INFORMATION
  Report Type: Spontaneous
  Country: JP (occurrence: JP)
  Receive Date: 20241004
  Receipt Date: 20241028
  Transmission Date: 20250115
  Serious: Yes (Hospitalization, Other)
  Sender: RANBAXY
  Company Number: JP-SUN PHARMACEUTICAL INDUSTRIES LTD-2024R1-469030

PATIENT
  Age: 82 Year
  Sex: Male

DRUGS (7)
  1. LIORESAL [Suspect]
     Active Substance: BACLOFEN
     Indication: Product used for unknown indication
     Dosage: 10 MILLIGRAM, BID
     Route: 048
  2. LIORESAL [Suspect]
     Active Substance: BACLOFEN
     Dosage: 10 MILLIGRAM/DAY
     Route: 048
  3. RIVOTRIL Tablet 0.5mg [Concomitant]
     Indication: Product used for unknown indication
     Dosage: 0.5 MILLIGRAM, TID
     Route: 048
  4. BIO-THREE Combination tablets [Concomitant]
     Indication: Product used for unknown indication
     Dosage: 1 DOSAGE FORM, TID
     Route: 048
  5. DAYVIGO [Concomitant]
     Active Substance: LEMBOREXANT
     Indication: Product used for unknown indication
     Dosage: 1 DOSAGE FORM, QD, BEFORE BED
     Route: 048
  6. ROZEREM Tablet 8mg [Concomitant]
     Indication: Product used for unknown indication
     Dosage: 8 MILLIGRAM, QD, BEFORE BED
     Route: 048
  7. Duvroq Tablet 2mg [Concomitant]
     Indication: Product used for unknown indication
     Dosage: 2 MILLIGRAM, QD, MORNING
     Route: 048

REACTIONS (3)
  - Renal impairment [Not Recovered/Not Resolved]
  - Haemoglobin decreased [Not Recovered/Not Resolved]
  - International normalised ratio increased [Not Recovered/Not Resolved]

NARRATIVE: CASE EVENT DATE: 20240906
